FAERS Safety Report 23302670 (Version 2)
Quarter: 2024Q2

REPORT INFORMATION
  Report Type: Spontaneous
  Country: CA (occurrence: CA)
  Receive Date: 20231215
  Receipt Date: 20240521
  Transmission Date: 20240716
  Serious: Yes (Other)
  Sender: FDA-Public Use
  Company Number: CA-TAKEDA-2023TUS110775

PATIENT
  Age: 74 Year
  Sex: Female

DRUGS (4)
  1. ENTYVIO [Suspect]
     Active Substance: VEDOLIZUMAB
     Indication: Crohn^s disease
     Dosage: 300 MILLIGRAM
     Route: 042
     Dates: start: 20231027
  2. ENTYVIO [Suspect]
     Active Substance: VEDOLIZUMAB
     Indication: Colitis ulcerative
  3. METHOTREXATE [Concomitant]
     Active Substance: METHOTREXATE
     Dosage: 25 MILLIGRAM, 1/WEEK
     Route: 058
  4. ENTOCORT [Concomitant]
     Active Substance: BUDESONIDE
     Dosage: 9 MILLIGRAM

REACTIONS (3)
  - Syncope [Unknown]
  - Drug ineffective [Not Recovered/Not Resolved]
  - Hand fracture [Recovering/Resolving]

NARRATIVE: CASE EVENT DATE: 20231205
